FAERS Safety Report 9517284 (Version 2)
Quarter: 2014Q3

REPORT INFORMATION
  Report Type: Spontaneous
  Country: US (occurrence: US)
  Receive Date: 20130911
  Receipt Date: 20140828
  Transmission Date: 20150326
  Serious: Yes (Hospitalization, Disabling)
  Sender: FDA-Public Use
  Company Number: US-009507513-1309USA003687

PATIENT
  Sex: Female

DRUGS (1)
  1. NUVARING [Suspect]
     Active Substance: ETHINYL ESTRADIOL\ETONOGESTREL
     Dosage: UNK
     Route: 067
     Dates: start: 20100614, end: 20110120

REACTIONS (7)
  - Inflammation [Unknown]
  - Vena cava thrombosis [Unknown]
  - Deep vein thrombosis [Unknown]
  - Deep vein thrombosis [Unknown]
  - Factor V Leiden mutation [Unknown]
  - Anticoagulation drug level below therapeutic [Unknown]
  - Sciatica [Unknown]

NARRATIVE: CASE EVENT DATE: 20110102
